FAERS Safety Report 14868161 (Version 2)
Quarter: 2018Q4

REPORT INFORMATION
  Report Type: Spontaneous
  Country: FR (occurrence: FR)
  Receive Date: 20180509
  Receipt Date: 20181025
  Transmission Date: 20190204
  Serious: Yes (Other)
  Sender: FDA-Public Use
  Company Number: FR-MERCK KGAA-2047435

PATIENT
  Age: 43 Year
  Sex: Female

DRUGS (1)
  1. EUTHYROX [Suspect]
     Active Substance: LEVOTHYROXINE SODIUM
     Indication: PRODUCT USED FOR UNKNOWN INDICATION

REACTIONS (23)
  - Nausea [Recovering/Resolving]
  - Depression [Recovering/Resolving]
  - Irritability [Recovering/Resolving]
  - Inappropriate affect [Recovering/Resolving]
  - Fear of disease [Recovering/Resolving]
  - Limb discomfort [Recovering/Resolving]
  - Fatigue [Recovering/Resolving]
  - Libido decreased [Recovering/Resolving]
  - Malaise [Recovering/Resolving]
  - Hair texture abnormal [Recovering/Resolving]
  - Apathy [Recovering/Resolving]
  - Mood swings [Recovering/Resolving]
  - Psychiatric symptom [Recovering/Resolving]
  - Headache [Recovering/Resolving]
  - Loss of personal independence in daily activities [Recovering/Resolving]
  - Muscle spasms [Not Recovered/Not Resolved]
  - Impaired driving ability [Recovering/Resolving]
  - Suicidal ideation [Recovering/Resolving]
  - Alopecia [Recovering/Resolving]
  - Depressed mood [Recovering/Resolving]
  - Dizziness [Recovering/Resolving]
  - Dyspnoea [Recovering/Resolving]
  - Sleep disorder [Recovering/Resolving]
